FAERS Safety Report 26135776 (Version 1)
Quarter: 2025Q4

REPORT INFORMATION
  Report Type: Spontaneous
  Country: CN (occurrence: CN)
  Receive Date: 20251209
  Receipt Date: 20251209
  Transmission Date: 20260118
  Serious: Yes (Life-Threatening, Hospitalization, Other)
  Sender: BAYER HEALTHCARE PHARMACEUTICALS INC.
  Company Number: CN-BAYER-2025A161964

PATIENT
  Age: 68 Year
  Sex: Male
  Weight: 88 kg

DRUGS (2)
  1. ULTRAVIST [Suspect]
     Active Substance: IOPROMIDE
     Indication: Rectal cancer stage IV
     Dosage: 100 ML, ONCE
     Route: 042
     Dates: start: 20251119, end: 20251119
  2. ULTRAVIST [Suspect]
     Active Substance: IOPROMIDE
     Indication: Computerised tomogram

REACTIONS (9)
  - Anaphylactic shock [Recovering/Resolving]
  - Seizure [Recovered/Resolved]
  - Unresponsive to stimuli [None]
  - Stridor [None]
  - Rales [None]
  - Restlessness [None]
  - Patient uncooperative [None]
  - Coma [Recovered/Resolved]
  - Respiratory rate increased [None]

NARRATIVE: CASE EVENT DATE: 20251119
